FAERS Safety Report 5705455-8 (Version None)
Quarter: 2008Q2

REPORT INFORMATION
  Report Type: 
  Country: None (occurrence: None)
  Receive Date: 20080411
  Receipt Date: 20080402
  Transmission Date: 20081010
  Serious: Yes (Hospitalization)
  Sender: FDA-Public Use
  Company Number: 14136295

PATIENT
  Age: 37 Year
  Sex: Male

DRUGS (2)
  1. REVIA [Suspect]
     Indication: ALCOHOL ABUSE
     Dosage: 1 DOSAGE
     Dates: start: 20080319
  2. SUBUTEX [Suspect]
     Dosage: 8 MILLIGRAM 2/1 DAY;

REACTIONS (6)
  - AGITATION [None]
  - GASTROINTESTINAL DISORDER [None]
  - HYPERHIDROSIS [None]
  - MYDRIASIS [None]
  - VOMITING [None]
  - WITHDRAWAL SYNDROME [None]
